FAERS Safety Report 7290592-X (Version None)
Quarter: 2011Q1

REPORT INFORMATION
  Report Type: 
  Country: None (occurrence: None)
  Receive Date: 20110209
  Receipt Date: 20110209
  Transmission Date: 20110831
  Serious: No
  Sender: FDA-Public Use
  Company Number: None

PATIENT

DRUGS (1)
  1. PROAIR HFA [Suspect]
     Indication: RESPIRATORY DISORDER
     Dates: start: 20110201, end: 20110209

REACTIONS (2)
  - PRODUCT FORMULATION ISSUE [None]
  - DRUG INEFFECTIVE [None]
